FAERS Safety Report 7992450-1 (Version None)
Quarter: 2011Q4

REPORT INFORMATION
  Report Type: 
  Country: None (occurrence: None)
  Receive Date: 20111219
  Receipt Date: 20111209
  Transmission Date: 20120403
  Serious: Yes (Other)
  Sender: FDA-Public Use
  Company Number: PHEH2011US011445

PATIENT
  Age: 59 Year
  Sex: Male

DRUGS (6)
  1. VOLTAREN [Suspect]
     Indication: PAIN
     Dosage: 25 MG
  2. DIFLUCAN [Suspect]
  3. DICLOFENAC SODIUM [Suspect]
  4. INDOCIN [Suspect]
  5. VOLTAREN-XR [Suspect]
     Indication: BURSITIS
     Dosage: 75 MG
  6. VOLTAREN [Suspect]
     Dosage: 50 MG,

REACTIONS (3)
  - STRESS [None]
  - BLOOD PRESSURE INCREASED [None]
  - DRUG INEFFECTIVE [None]
